FAERS Safety Report 9341601 (Version 2)
Quarter: 2013Q3

REPORT INFORMATION
  Report Type: Spontaneous
  Country: US (occurrence: None)
  Receive Date: 20130606
  Receipt Date: 20130702
  Transmission Date: 20140515
  Serious: Yes (Other)
  Sender: FDA-Public Use
  Company Number: ADR-2013-00941

PATIENT
  Age: 49 Year
  Sex: Female

DRUGS (1)
  1. BACLOFEN INTRATHECAL [Suspect]
     Indication: MUSCLE SPASTICITY

REACTIONS (8)
  - Feeling abnormal [None]
  - Musculoskeletal disorder [None]
  - Paralysis [None]
  - Paraesthesia [None]
  - Muscle spasms [None]
  - Musculoskeletal stiffness [None]
  - Dyspnoea [None]
  - Pruritus [None]
